FAERS Safety Report 18058974 (Version 4)
Quarter: 2020Q3

REPORT INFORMATION
  Report Type: Spontaneous
  Country: US (occurrence: US)
  Receive Date: 20200723
  Receipt Date: 20200730
  Transmission Date: 20201103
  Serious: No
  Sender: FDA-Public Use
  Company Number: US-SA-2020SA189146

PATIENT

DRUGS (1)
  1. ENOXAPARIN SODIUM. [Suspect]
     Active Substance: ENOXAPARIN SODIUM
     Dosage: 40 MG IN 4 ML
     Route: 065

REACTIONS (3)
  - Occupational exposure to product [Unknown]
  - Injury associated with device [Unknown]
  - Device malfunction [Unknown]
